FAERS Safety Report 7469279-6 (Version None)
Quarter: 2011Q2

REPORT INFORMATION
  Report Type: 
  Country: None (occurrence: None)
  Receive Date: 20110510
  Receipt Date: 20110504
  Transmission Date: 20111010
  Serious: No
  Sender: FDA-Public Use
  Company Number: US-JNJFOC-20110502495

PATIENT
  Age: 41 Year
  Sex: Female

DRUGS (4)
  1. INVEGA SUSTENNA [Suspect]
     Indication: SCHIZOPHRENIA
     Route: 030
  2. DESYREL [Concomitant]
  3. ABILIFY [Concomitant]
  4. BUSPAR [Concomitant]

REACTIONS (2)
  - LACTATION DISORDER [None]
  - PRODUCT QUALITY ISSUE [None]
